FAERS Safety Report 12978275 (Version 2)
Quarter: 2016Q4

REPORT INFORMATION
  Report Type: Spontaneous
  Country: US (occurrence: US)
  Receive Date: 20161128
  Receipt Date: 20161227
  Transmission Date: 20170207
  Serious: No
  Sender: FDA-Public Use
  Company Number: US-PFIZER INC-2016540619

PATIENT
  Age: 51 Year
  Sex: Female

DRUGS (3)
  1. EMYCIN /00020901/ [Suspect]
     Active Substance: ERYTHROMYCIN
     Dosage: UNK
  2. FLAGYL [Suspect]
     Active Substance: METRONIDAZOLE\METRONIDAZOLE HYDROCHLORIDE
     Dosage: UNK
  3. MOTRIN [Suspect]
     Active Substance: IBUPROFEN
     Dosage: UNK

REACTIONS (1)
  - Drug hypersensitivity [Unknown]
